FAERS Safety Report 16799277 (Version 1)
Quarter: 2019Q3

REPORT INFORMATION
  Report Type: Spontaneous
  Country: FR (occurrence: FR)
  Receive Date: 20190912
  Receipt Date: 20190912
  Transmission Date: 20191005
  Serious: Yes (Life-Threatening)
  Sender: FDA-Public Use
  Company Number: FR-MYLANLABS-2019M1085780

PATIENT
  Age: 26 Year
  Sex: Female

DRUGS (5)
  1. TRACRIUM [Suspect]
     Active Substance: ATRACURIUM BESYLATE
     Indication: GENERAL ANAESTHESIA
     Dosage: UNK
     Route: 041
     Dates: start: 20190211, end: 20190211
  2. CEFAZOLIN [Suspect]
     Active Substance: CEFAZOLIN
     Indication: INFECTION
     Dosage: UNK
     Route: 042
     Dates: start: 20190211, end: 20190211
  3. DEXAMETHASONE. [Suspect]
     Active Substance: DEXAMETHASONE
     Indication: HYPERSENSITIVITY
     Dosage: UNK
     Route: 042
     Dates: start: 20190211, end: 20190211
  4. PROPOFOL. [Suspect]
     Active Substance: PROPOFOL
     Indication: GENERAL ANAESTHESIA
     Dosage: UNK
     Route: 041
     Dates: start: 20190211, end: 20190211
  5. SUFENTANIL [Suspect]
     Active Substance: SUFENTANIL
     Indication: GENERAL ANAESTHESIA
     Dosage: UNK
     Route: 041
     Dates: start: 20190211, end: 20190211

REACTIONS (3)
  - PCO2 increased [Recovered/Resolved]
  - Bronchospasm [Recovered/Resolved]
  - Urticaria [Recovered/Resolved]

NARRATIVE: CASE EVENT DATE: 20190211
